FAERS Safety Report 13774361 (Version 1)
Quarter: 2017Q3

REPORT INFORMATION
  Report Type: Spontaneous
  Country: US (occurrence: US)
  Receive Date: 20170720
  Receipt Date: 20170720
  Transmission Date: 20171127
  Serious: Yes (Other)
  Sender: FDA-Public Use
  Company Number: None

PATIENT
  Age: 21 Year
  Sex: Male
  Weight: 51.75 kg

DRUGS (5)
  1. CARAFATE [Concomitant]
     Active Substance: SUCRALFATE
  2. PROPRANOLOL [Concomitant]
     Active Substance: PROPRANOLOL HYDROCHLORIDE
  3. DAILY MULTI VITAMIN [Concomitant]
  4. MIRTAZAPINE 30MG [Suspect]
     Active Substance: MIRTAZAPINE
     Indication: DEPRESSION
     Dosage: ?          OTHER STRENGTH:MG;QUANTITY:1 TABLET(S);?
     Route: 048
     Dates: start: 20170718, end: 20170720
  5. HYOSCYAMINE. [Concomitant]
     Active Substance: HYOSCYAMINE

REACTIONS (4)
  - Dizziness [None]
  - Suicidal ideation [None]
  - Somnolence [None]
  - Sedation [None]

NARRATIVE: CASE EVENT DATE: 20170719
